FAERS Safety Report 6065456-X (Version None)
Quarter: 2009Q1

REPORT INFORMATION
  Report Type: 
  Country: None (occurrence: None)
  Receive Date: 20090204
  Receipt Date: 20090123
  Transmission Date: 20090719
  Serious: Yes (Death)
  Sender: FDA-Public Use
  Company Number: US-PFIZER INC-2009162806

PATIENT

DRUGS (1)
  1. GEODON [Suspect]
     Dosage: UNIT DOSE: UNKNOWN;

REACTIONS (4)
  - BODY TEMPERATURE DECREASED [None]
  - HYPOTENSION [None]
  - INCORRECT ROUTE OF DRUG ADMINISTRATION [None]
  - UNRESPONSIVE TO STIMULI [None]
